FAERS Safety Report 9101922 (Version 3)
Quarter: 2013Q4

REPORT INFORMATION
  Report Type: Spontaneous
  Country: US (occurrence: US)
  Receive Date: 20130218
  Receipt Date: 20131125
  Transmission Date: 20140711
  Serious: Yes (Hospitalization, Other)
  Sender: FDA-Public Use
  Company Number: US-009507513-1302USA007772

PATIENT
  Sex: Female

DRUGS (2)
  1. FOSAMAX [Suspect]
     Indication: OSTEOPENIA
     Dosage: 70 MG, QW
     Route: 048
     Dates: end: 20080609
  2. ALENDRONATE SODIUM [Suspect]
     Indication: OSTEOPENIA
     Dosage: 70 MG, QW
     Route: 048
     Dates: start: 20080703, end: 20110204

REACTIONS (41)
  - Femur fracture [Unknown]
  - Open reduction of fracture [Unknown]
  - Rotator cuff repair [Unknown]
  - Low turnover osteopathy [Unknown]
  - Hypertension [Unknown]
  - Hypercholesterolaemia [Unknown]
  - Tendon calcification [Unknown]
  - Osteoarthritis [Unknown]
  - Exostosis [Unknown]
  - Rib fracture [Unknown]
  - Spinal osteoarthritis [Unknown]
  - Fall [Unknown]
  - Fall [Unknown]
  - Anaemia [Unknown]
  - Dermatitis contact [Unknown]
  - Large intestine polyp [Unknown]
  - Depression [Unknown]
  - Lichen sclerosus [Unknown]
  - Atrophic vulvovaginitis [Unknown]
  - Vulval neoplasm [Unknown]
  - Osteoporosis [Unknown]
  - Back pain [Unknown]
  - Pain in extremity [Unknown]
  - Musculoskeletal pain [Not Recovered/Not Resolved]
  - Arthralgia [Unknown]
  - Type 1 diabetes mellitus [Unknown]
  - Limb asymmetry [Unknown]
  - Osteoarthritis [Unknown]
  - Exostosis [Unknown]
  - Exostosis [Unknown]
  - Osteoarthritis [Unknown]
  - Exostosis [Unknown]
  - Tendonitis [Unknown]
  - Hair disorder [Unknown]
  - Trigeminal neuralgia [Unknown]
  - Scleroderma [Unknown]
  - Colitis ulcerative [Unknown]
  - Arthralgia [Unknown]
  - Acute sinusitis [Unknown]
  - Dermatitis exfoliative [Unknown]
  - Drug ineffective [Unknown]
